FAERS Safety Report 4334486-8 (Version None)
Quarter: 2004Q2

REPORT INFORMATION
  Report Type: 
  Country: None (occurrence: None)
  Receive Date: 20040407
  Receipt Date: 20040401
  Transmission Date: 20050107
  Serious: Yes (Hospitalization, Disabling)
  Sender: FDA-Public Use
  Company Number: US-GLAXOSMITHKLINE-A0505590A

PATIENT
  Age: 6 Year
  Sex: Male

DRUGS (2)
  1. DEXTRO AMPHETAMINE SULFATE TAB [Suspect]
     Indication: ATTENTION DEFICIT/HYPERACTIVITY DISORDER
     Dosage: 25MG VARIABLE DOSE
     Route: 048
  2. MULTIVITAMIN [Concomitant]

REACTIONS (8)
  - ABDOMINAL PAIN [None]
  - BLOOD CREATINE PHOSPHOKINASE ABNORMAL [None]
  - HYPERAESTHESIA [None]
  - MYOSITIS [None]
  - NAUSEA [None]
  - PYREXIA [None]
  - VIRAL INFECTION [None]
  - VOMITING [None]
